FAERS Safety Report 16024679 (Version 1)
Quarter: 2019Q1

REPORT INFORMATION
  Report Type: Spontaneous
  Country: CA (occurrence: CA)
  Receive Date: 20190301
  Receipt Date: 20190301
  Transmission Date: 20190418
  Serious: No
  Sender: FDA-Public Use
  Company Number: CA-HILL DERMACEUTICALS, INC.-2063413

PATIENT
  Age: 11 Year
  Sex: Female

DRUGS (1)
  1. DERMA-SMOOTHE/FS [Suspect]
     Active Substance: FLUOCINOLONE ACETONIDE
     Indication: ECZEMA
     Route: 061
     Dates: start: 20190105, end: 20190111

REACTIONS (4)
  - Rash [Recovered/Resolved]
  - Application site pain [Recovered/Resolved]
  - Application site pruritus [Recovered/Resolved]
  - Administration site inflammation [Recovered/Resolved]

NARRATIVE: CASE EVENT DATE: 20190105
